FAERS Safety Report 6506547-6 (Version None)
Quarter: 2009Q4

REPORT INFORMATION
  Report Type: 
  Country: None (occurrence: None)
  Receive Date: 20091216
  Receipt Date: 20091203
  Transmission Date: 20100525
  Serious: Yes (Other)
  Sender: FDA-Public Use
  Company Number: 2009-03738

PATIENT
  Age: 65 Year
  Sex: Female

DRUGS (7)
  1. VELCADE [Suspect]
     Indication: MULTIPLE MYELOMA
  2. DOXORUBICIN HCL [Suspect]
     Indication: MULTIPLE MYELOMA
  3. ACTOPLUS MET (METFORMIN HYDROCHLORIDE, PIOGLITAZONE HYDROCHLORIDE) [Concomitant]
  4. JANUVIA [Concomitant]
  5. LIPITOR [Concomitant]
  6. AREDIA [Concomitant]
  7. PREMARIN /00073001/ (ESTROGENS CONJUCATED) [Concomitant]

REACTIONS (5)
  - CATARACT [None]
  - COLOUR BLINDNESS [None]
  - OPTIC ISCHAEMIC NEUROPATHY [None]
  - PAPILLOEDEMA [None]
  - SCOTOMA [None]
